FAERS Safety Report 9833003 (Version 3)
Quarter: 2014Q1

REPORT INFORMATION
  Report Type: Spontaneous
  Country: GB (occurrence: GB)
  Receive Date: 20140121
  Receipt Date: 20140325
  Transmission Date: 20141002
  Serious: Yes (Other)
  Sender: FDA-Public Use
  Company Number: CHPA2014GB000909

PATIENT
  Age: 58 Year
  Sex: Female

DRUGS (1)
  1. EX-LAX CHOCOLATE PIECES [Suspect]
     Route: 048

REACTIONS (2)
  - Tooth fracture [Unknown]
  - Foreign body [Unknown]
